FAERS Safety Report 8239811-3 (Version None)
Quarter: 2012Q1

REPORT INFORMATION
  Report Type: 
  Country: None (occurrence: None)
  Receive Date: 20120328
  Receipt Date: 20120320
  Transmission Date: 20120608
  Serious: Yes (Hospitalization, Other)
  Sender: FDA-Public Use
  Company Number: US-ASTELLAS-2012US000319

PATIENT
  Sex: Female
  Weight: 70 kg

DRUGS (42)
  1. SCOPOLAMINE [Suspect]
     Indication: VOMITING
  2. LOMOTIL [Concomitant]
     Dosage: 2 DF, Q6 HOURS
     Route: 048
  3. CALCIUM CARBONATE [Concomitant]
     Indication: SUPPLEMENTATION THERAPY
     Dosage: 1 DF, UID/QD
     Route: 048
  4. ZOFRAN [Concomitant]
     Indication: PRODUCT USED FOR UNKNOWN INDICATION
     Dosage: 8 MG, QID
     Route: 065
  5. MARINOL [Suspect]
     Indication: VOMITING
  6. COLESTIPOL HYDROCHLORIDE [Concomitant]
     Indication: PRODUCT USED FOR UNKNOWN INDICATION
     Dosage: 1 DF, BID
     Route: 048
  7. DASATINIB [Suspect]
     Dosage: 20 MG, UID/QD
     Route: 048
     Dates: start: 20111202, end: 20120304
  8. HYDROCHLOROTHIAZIDE [Concomitant]
     Indication: HYPERTENSION
     Dosage: 25 MG, UID/QD
     Route: 048
  9. FISH OIL [Concomitant]
     Indication: SUPPLEMENTATION THERAPY
     Dosage: 1000 MG, QHS
     Route: 048
  10. TYLENOL [Concomitant]
     Indication: HEADACHE
  11. METOPROLOL SUCCINATE [Concomitant]
     Indication: PRODUCT USED FOR UNKNOWN INDICATION
     Dosage: 100 MG, Q12 HOURS
     Route: 065
  12. DASATINIB [Suspect]
     Dosage: 50 MG, UID/QD
     Route: 048
  13. REGLAN [Suspect]
     Indication: NAUSEA
     Dosage: 5 MG, BID
     Route: 048
  14. PHENERGAN HCL [Suspect]
     Indication: VOMITING
  15. KLONOPIN [Suspect]
     Indication: PRODUCT USED FOR UNKNOWN INDICATION
     Dosage: UNK
     Route: 065
  16. LOMOTIL [Concomitant]
     Indication: DIARRHOEA
     Dosage: UNK, 1-2 TABLETS Q 4-6 HRS
     Route: 048
  17. EFFEXOR XR [Concomitant]
     Indication: DEPRESSION
     Dosage: 150 MG, UID/QD
     Route: 048
  18. DIOVAN [Concomitant]
     Indication: HYPERTENSION
     Dosage: 320 MG, UID/QD
     Route: 048
  19. ONDANSETRON HCL [Concomitant]
     Indication: VOMITING
     Dosage: 8 MG, TID
     Route: 048
  20. TYLENOL [Concomitant]
     Indication: PAIN
     Dosage: 500 MG, PRN
     Route: 048
  21. DASATINIB [Suspect]
     Indication: NON-SMALL CELL LUNG CANCER METASTATIC
     Dosage: 20 MG, UID/QD
     Route: 048
     Dates: start: 20111202, end: 20120106
  22. DASATINIB [Suspect]
     Dosage: 50 MG, UID/QD
     Route: 048
     Dates: start: 20111202, end: 20120106
  23. MARINOL [Suspect]
     Indication: NAUSEA
     Dosage: 2.5 MG, BID
     Route: 048
  24. SCOPOLAMINE [Suspect]
     Indication: NAUSEA
     Dosage: 1 DF, Q72HRS
     Route: 061
  25. TOPROL-XL [Concomitant]
     Indication: HYPERTENSION
     Dosage: 100 MG, Q12 HOURS
     Route: 048
  26. TIMOLOL MALEATE [Concomitant]
     Indication: GLAUCOMA
     Dosage: 1 DF, QHS, EACH EYE
     Route: 031
  27. SIMVASTATIN [Concomitant]
     Indication: BLOOD CHOLESTEROL
     Dosage: 20 MG, QHS
     Route: 048
  28. EVISTA [Concomitant]
     Indication: OSTEOPOROSIS
     Dosage: 60 MG, UID/QD
     Route: 048
  29. ERLOTINIB HYDROCHLORIDE [Suspect]
     Dosage: 150 MG, UID/QD
     Route: 048
     Dates: start: 20120120, end: 20120304
  30. NORVASC [Concomitant]
     Indication: HYPERTENSION
     Dosage: 5 MG, UID/QD
     Route: 048
  31. CLONAZEPAM [Concomitant]
     Indication: ANXIETY
     Dosage: 1 MG, QHS PRN
     Route: 048
  32. ERLOTINIB HYDROCHLORIDE [Suspect]
     Indication: NON-SMALL CELL LUNG CANCER METASTATIC
     Dosage: 150 MG, UID/QD
     Route: 048
     Dates: start: 20111202, end: 20120106
  33. CALCIUM +D [Concomitant]
     Indication: PRODUCT USED FOR UNKNOWN INDICATION
     Dosage: 1 UNK, UID/QD
     Route: 065
  34. DASATINIB [Suspect]
     Dosage: 50 MG, UID/QD
     Route: 048
     Dates: start: 20120120, end: 20120304
  35. REGLAN [Suspect]
     Indication: VOMITING
  36. PHENERGAN HCL [Suspect]
     Indication: NAUSEA
     Dosage: 75 MG, Q8 HOURS PRN
     Route: 065
  37. ZETIA [Concomitant]
     Indication: PRODUCT USED FOR UNKNOWN INDICATION
     Dosage: 10 MG, QHS
     Route: 065
  38. XALATAN [Concomitant]
     Indication: GLAUCOMA
     Dosage: 1 DF, QHS, EACH EYE
     Route: 031
  39. PREVACID [Concomitant]
     Indication: PRODUCT USED FOR UNKNOWN INDICATION
     Dosage: 30 MG, QHS
  40. ASPIRIN [Concomitant]
     Indication: CARDIOVASCULAR EVENT PROPHYLAXIS
     Dosage: 81 MG, QHS
     Route: 048
  41. ONDANSETRON HCL [Concomitant]
     Indication: NAUSEA
     Dosage: 6 MG, TID
     Route: 048
  42. DRONABINOL [Concomitant]
     Indication: PRODUCT USED FOR UNKNOWN INDICATION
     Dosage: 2.5 MG, BID
     Route: 065

REACTIONS (24)
  - NAUSEA [None]
  - ANXIETY [None]
  - ACUTE RESPIRATORY FAILURE [None]
  - DEHYDRATION [None]
  - CONSTIPATION [None]
  - DEPRESSION [None]
  - DYSPNOEA [None]
  - PAIN [None]
  - MENTAL STATUS CHANGES [None]
  - CATATONIA [None]
  - OEDEMA PERIPHERAL [None]
  - WEIGHT DECREASED [None]
  - GASTROOESOPHAGEAL REFLUX DISEASE [None]
  - MALIGNANT PLEURAL EFFUSION [None]
  - HYPOKALAEMIA [None]
  - ACUTE SINUSITIS [None]
  - VOMITING [None]
  - ANAEMIA POSTOPERATIVE [None]
  - ANAEMIA [None]
  - DRUG INEFFECTIVE [None]
  - DIARRHOEA [None]
  - NEOPLASM MALIGNANT [None]
  - COUGH [None]
  - GASTRIC ULCER [None]
